FAERS Safety Report 26113758 (Version 1)
Quarter: 2025Q4

REPORT INFORMATION
  Report Type: Spontaneous
  Country: US (occurrence: None)
  Receive Date: 20251202
  Receipt Date: 20251202
  Transmission Date: 20260117
  Serious: Yes (Other)
  Sender: FDA-CTU
  Company Number: None

PATIENT
  Age: 40 Year
  Sex: Female
  Weight: 108 kg

DRUGS (1)
  1. NITROFURANTOIN MONO [Suspect]
     Active Substance: NITROFURANTOIN\NITROFURANTOIN MONOHYDRATE
     Indication: Urinary tract infection
     Dosage: 1 TABLET EVERY 12 HOURS ORAL
     Route: 048

REACTIONS (4)
  - Oedema peripheral [None]
  - Pruritus [None]
  - Erythema [None]
  - Urticaria [None]

NARRATIVE: CASE EVENT DATE: 20251202
